FAERS Safety Report 16124705 (Version 6)
Quarter: 2020Q1

REPORT INFORMATION
  Report Type: Report from Study
  Country: US (occurrence: US)
  Receive Date: 20190327
  Receipt Date: 20200123
  Transmission Date: 20200409
  Serious: Yes (Death, Hospitalization)
  Sender: FDA-Public Use
  Company Number: US-ACTELION-A-NJ2018-168732

PATIENT
  Age: 80 Year
  Sex: Male
  Weight: 85.71 kg

DRUGS (4)
  1. UPTRAVI [Suspect]
     Active Substance: SELEXIPAG
     Dosage: 1600 MCG, BID
     Route: 048
  2. ADEMPAS [Concomitant]
     Active Substance: RIOCIGUAT
  3. OPSUMIT [Suspect]
     Active Substance: MACITENTAN
     Indication: PULMONARY ARTERIAL HYPERTENSION
     Dosage: 10 MG, QD
     Route: 048
     Dates: end: 201911
  4. UPTRAVI [Suspect]
     Active Substance: SELEXIPAG
     Indication: PULMONARY ARTERIAL HYPERTENSION
     Route: 048

REACTIONS (14)
  - Diarrhoea [Unknown]
  - Urinary bladder haemorrhage [Unknown]
  - Pulmonary thrombosis [Unknown]
  - Pneumonia [Unknown]
  - Arthralgia [Recovering/Resolving]
  - Haematochezia [Unknown]
  - Death [Fatal]
  - Hypotension [Unknown]
  - Chills [Unknown]
  - Influenza [Unknown]
  - Fluid retention [Unknown]
  - Anaemia [Unknown]
  - Bladder mass [Unknown]
  - Thrombosis [Unknown]

NARRATIVE: CASE EVENT DATE: 20180228
